FAERS Safety Report 10048558 (Version 1)
Quarter: 2014Q1

REPORT INFORMATION
  Report Type: Spontaneous
  Country: US (occurrence: US)
  Receive Date: 20140331
  Receipt Date: 20140331
  Transmission Date: 20141002
  Serious: No
  Sender: FDA-Public Use
  Company Number: US-GILEAD-2014-0097849

PATIENT
  Sex: Female

DRUGS (3)
  1. SOVALDI [Suspect]
     Indication: PRODUCT USED FOR UNKNOWN INDICATION
     Dosage: 5X400MG PILLS A DAY
     Route: 048
  2. SOVALDI [Suspect]
     Dosage: 400 UNK, UNK
     Route: 048
  3. RIBAVIRIN [Concomitant]

REACTIONS (2)
  - Headache [Unknown]
  - Overdose [Unknown]
